FAERS Safety Report 10389809 (Version 5)
Quarter: 2014Q4

REPORT INFORMATION
  Report Type: Spontaneous
  Country: US (occurrence: US)
  Receive Date: 20140818
  Receipt Date: 20141119
  Transmission Date: 20150528
  Serious: Yes (Hospitalization, Other)
  Sender: FDA-Public Use
  Company Number: US-JNJFOC-20140808091

PATIENT
  Age: 36 Year
  Sex: Female
  Weight: 58.97 kg

DRUGS (1)
  1. TYLENOL EXTRA STRENGTH [Suspect]
     Active Substance: ACETAMINOPHEN
     Indication: TOOTHACHE
     Dosage: MULTIPLE TABLETS IN LESS THAN 24 HOURS
     Route: 048
     Dates: start: 20080912, end: 20080914

REACTIONS (8)
  - Accidental overdose [Unknown]
  - Hepatitis toxic [Unknown]
  - Acute hepatic failure [Unknown]
  - Drug ineffective [Unknown]
  - Vomiting [Unknown]
  - Nausea [Unknown]
  - Electrolyte imbalance [Unknown]
  - Hyponatraemia [Unknown]

NARRATIVE: CASE EVENT DATE: 200809
